FAERS Safety Report 6150852-2 (Version None)
Quarter: 2009Q2

REPORT INFORMATION
  Report Type: 
  Country: None (occurrence: None)
  Receive Date: 20090408
  Receipt Date: 20090331
  Transmission Date: 20091009
  Serious: Yes (Other)
  Sender: FDA-Public Use
  Company Number: 2009SP006995

PATIENT
  Age: 42 Year
  Sex: Female

DRUGS (5)
  1. CLARITIN REDITABS [Suspect]
     Indication: HEADACHE
     Dosage: ONCE
     Dates: start: 20090328
  2. CLARITIN REDITABS [Suspect]
     Indication: SINUS HEADACHE
     Dosage: ONCE
     Dates: start: 20090328
  3. TOPAMAX [Concomitant]
  4. LAMICTAL [Concomitant]
  5. CYTOMEL [Concomitant]

REACTIONS (2)
  - CONVULSION [None]
  - LOSS OF CONSCIOUSNESS [None]
